FAERS Safety Report 24970420 (Version 3)
Quarter: 2025Q1

REPORT INFORMATION
  Report Type: Spontaneous
  Country: IL (occurrence: IL)
  Receive Date: 20250214
  Receipt Date: 20250328
  Transmission Date: 20250408
  Serious: Yes (Hospitalization)
  Sender: SAREPTA THERAPEUTICS
  Company Number: IL-SAREPTA THERAPEUTICS INC.-SRP2025-005614

PATIENT

DRUGS (4)
  1. EXONDYS 51 [Suspect]
     Active Substance: ETEPLIRSEN
     Indication: Duchenne muscular dystrophy
     Route: 042
     Dates: end: 20241218
  2. EXONDYS 51 [Suspect]
     Active Substance: ETEPLIRSEN
     Route: 042
     Dates: start: 20250122
  3. TERBINAFINE [Suspect]
     Active Substance: TERBINAFINE
     Indication: Fungal skin infection
     Dates: start: 202412, end: 202412
  4. URSODIOL [Suspect]
     Active Substance: URSODIOL
     Indication: Cholestasis
     Dates: start: 202412, end: 202412

REACTIONS (5)
  - Drug-induced liver injury [Recovering/Resolving]
  - Fungal skin infection [Not Recovered/Not Resolved]
  - Weight decreased [Recovering/Resolving]
  - Onychomycosis [Not Recovered/Not Resolved]
  - Rash [Unknown]

NARRATIVE: CASE EVENT DATE: 20240901
